FAERS Safety Report 19834745 (Version 1)
Quarter: 2021Q3

REPORT INFORMATION
  Report Type: Other
  Country: US (occurrence: US)
  Receive Date: 20210915
  Receipt Date: 20210915
  Transmission Date: 20211014
  Serious: No
  Sender: FDA-Public Use
  Company Number: US-LEADIANT BIOSCIENCES INC-2020STPI000458

PATIENT
  Sex: Male

DRUGS (10)
  1. MATULANE [Suspect]
     Active Substance: PROCARBAZINE HYDROCHLORIDE
     Indication: BRAIN NEOPLASM MALIGNANT
     Dosage: 100 MILLIGRAM, QD
     Route: 048
     Dates: start: 20200703
  2. MEMANTINE. [Suspect]
     Active Substance: MEMANTINE
  3. ONDANSETRON [Concomitant]
     Active Substance: ONDANSETRON
  4. VIIBRYD [Concomitant]
     Active Substance: VILAZODONE HYDROCHLORIDE
  5. TROSPIUM [Concomitant]
     Active Substance: TROSPIUM
  6. GLEOSTINE [Concomitant]
     Active Substance: LOMUSTINE
  7. LEVETIRACETAM. [Concomitant]
     Active Substance: LEVETIRACETAM
  8. FAMOTIDINE. [Concomitant]
     Active Substance: FAMOTIDINE
  9. XARELTO [Concomitant]
     Active Substance: RIVAROXABAN
  10. CIALIS [Concomitant]
     Active Substance: TADALAFIL

REACTIONS (2)
  - Feeling abnormal [Not Recovered/Not Resolved]
  - Arthralgia [Not Recovered/Not Resolved]
